FAERS Safety Report 10099089 (Version 1)
Quarter: 2014Q2

REPORT INFORMATION
  Report Type: Spontaneous
  Country: CA (occurrence: CA)
  Receive Date: 20140423
  Receipt Date: 20140423
  Transmission Date: 20141212
  Serious: Yes (Other)
  Sender: FDA-Public Use
  Company Number: CA-WATSON-2014-07746

PATIENT
  Age: 52 Year
  Sex: Female
  Weight: 45 kg

DRUGS (9)
  1. VANCOMYCIN (UNKNOWN) [Suspect]
     Indication: ANTIBIOTIC PROPHYLAXIS
     Dosage: 1 G, SINGLE
     Route: 061
  2. MIDAZOLAM [Concomitant]
     Indication: ANAESTHESIA
     Dosage: 1 MG, SINGLE
     Route: 042
  3. FENTANYL [Concomitant]
     Indication: ANAESTHESIA
     Dosage: 150 ?G, SINGLE
     Route: 042
  4. PROPOFOL [Concomitant]
     Indication: ANAESTHESIA
     Dosage: 150 MG, SINGLE
     Route: 042
  5. ROCURONIUM [Concomitant]
     Indication: ANAESTHESIA
     Dosage: 50 MG, SINGLE
     Route: 065
  6. DESFLURANE [Concomitant]
     Indication: ANAESTHESIA
     Dosage: UNK
     Route: 065
  7. REMIFENTANIL [Concomitant]
     Indication: ANAESTHESIA
     Dosage: 0.03-0.06 G/KG/MIN
     Route: 042
  8. DEXAMETHASONE [Concomitant]
     Indication: PRODUCT USED FOR UNKNOWN INDICATION
     Dosage: 8 MG, SINGLE
     Route: 042
  9. VOLUVEN [Concomitant]
     Indication: FLUID REPLACEMENT
     Dosage: 1.3 L, SINGLE
     Route: 065

REACTIONS (2)
  - Anaphylactoid reaction [Recovered/Resolved]
  - Circulatory collapse [Recovered/Resolved]
